FAERS Safety Report 5025889-7 (Version None)
Quarter: 2006Q2

REPORT INFORMATION
  Report Type: 
  Country: None (occurrence: None)
  Receive Date: 20060608
  Receipt Date: 20060530
  Transmission Date: 20061013
  Serious: Yes (Hospitalization)
  Sender: FDA-Public Use
  Company Number: 232686K06USA

PATIENT
  Age: 63 Year
  Sex: Female
  Weight: 71.6683 kg

DRUGS (5)
  1. REBIF [Suspect]
     Indication: MULTIPLE SCLEROSIS
     Dosage: 44 MCG 3 IN 1 WEEKS, SUBCUTANEOUS
     Route: 058
     Dates: start: 20020701
  2. CYTOXAN [Concomitant]
  3. SOLU-MEDROL [Concomitant]
  4. DEXTROSE 5% SALINE (SODIUM CHLORIDE) [Concomitant]
  5. ZOFRAN [Concomitant]

REACTIONS (3)
  - ASTHENIA [None]
  - DIPLOPIA [None]
  - MULTIPLE SCLEROSIS RELAPSE [None]
